FAERS Safety Report 5209354-X (Version None)
Quarter: 2006Q4

REPORT INFORMATION
  Report Type: 
  Country: None (occurrence: None)
  Receive Date: 20061101
  Receipt Date: 20060804
  Transmission Date: 20070319
  Serious: No
  Sender: FDA-Public Use
  Company Number: SPV1-2006-00373

PATIENT
  Age: 52 Year
  Sex: Female
  Weight: 50 kg

DRUGS (16)
  1. FOSRENOL [Suspect]
     Indication: HYPERPHOSPHATAEMIA
     Dosage: 250 MG, 3X/DAY;TID
     Dates: start: 20060101
  2. FOSAMAX [Concomitant]
  3. COPAXONE /03175301/ (MMANITOL, GLATIRAMER ACETATE) [Concomitant]
  4. LOPRESSOR [Concomitant]
  5. MIRAPEX [Concomitant]
  6. ATIVAN [Concomitant]
  7. FAMOTIDINE [Concomitant]
  8. OXYTROL /00538902/ (OXYBUTYNIN HYDROCHLORIDE) [Concomitant]
  9. PREVACID [Concomitant]
  10. RISPERDAL [Concomitant]
  11. SYNTHROID [Concomitant]
  12. TRILEPTAL [Concomitant]
  13. ZOLOFT /0111402/(SERTRALINE HYDROCHLORIDE) [Concomitant]
  14. PRAVACHOL [Concomitant]
  15. REMERON [Concomitant]
  16. ZOLOFT [Concomitant]

REACTIONS (2)
  - ASTHENIA [None]
  - DIZZINESS [None]
